FAERS Safety Report 25005114 (Version 1)
Quarter: 2025Q1

REPORT INFORMATION
  Report Type: Spontaneous
  Country: CN (occurrence: CN)
  Receive Date: 20250224
  Receipt Date: 20250224
  Transmission Date: 20250409
  Serious: Yes (Other)
  Sender: SANOFI AVENTIS
  Company Number: CN-SA-2025SA048297

PATIENT
  Age: 49 Year
  Sex: Female
  Weight: 47.5 kg

DRUGS (5)
  1. ZOLPIDEM TARTRATE [Suspect]
     Active Substance: ZOLPIDEM TARTRATE
     Indication: Sleep disorder
     Dosage: 10 MG, QD
     Route: 048
     Dates: start: 20250120, end: 20250123
  2. Salivae miltiorrhizae liguspyragine hydrochloride and glucose [Concomitant]
     Indication: Coagulopathy
     Dosage: 100 ML, QD
     Route: 041
     Dates: start: 20250120, end: 20250124
  3. Bacillus Licheniformis Granules, Live [Concomitant]
     Indication: Infection
     Dosage: 0.5 G, TID
     Route: 048
     Dates: start: 20250120, end: 20250124
  4. OMEPRAZOLE SODIUM [Concomitant]
     Active Substance: OMEPRAZOLE SODIUM
     Indication: Gastritis
     Dosage: 40 MG, QD
     Route: 041
     Dates: start: 20250120, end: 20250127
  5. BETAHISTINE MESILATE [Concomitant]
     Active Substance: BETAHISTINE MESILATE
     Indication: Dizziness
     Dosage: 6 MG, TID
     Route: 048
     Dates: start: 20250120, end: 20250124

REACTIONS (7)
  - Unresponsive to stimuli [Recovering/Resolving]
  - Discomfort [Recovering/Resolving]
  - Tangentiality [Recovering/Resolving]
  - Confusional state [Recovering/Resolving]
  - Dysaesthesia [Recovering/Resolving]
  - Somnolence [Recovering/Resolving]
  - Asthenia [Recovering/Resolving]

NARRATIVE: CASE EVENT DATE: 20250123
